FAERS Safety Report 18549496 (Version 1)
Quarter: 2020Q4

REPORT INFORMATION
  Report Type: Spontaneous
  Country: US (occurrence: US)
  Receive Date: 20201126
  Receipt Date: 20201126
  Transmission Date: 20210114
  Serious: No
  Sender: FDA-Public Use
  Company Number: US-SA-2020SA332440

PATIENT

DRUGS (22)
  1. VITAMIN A [RETINOL] [Concomitant]
     Active Substance: RETINOL
  2. COENZYME Q10 [Concomitant]
     Active Substance: DIETARY SUPPLEMENT\UBIDECARENONE
  3. TURMERIC [CURCUMA LONGA] [Concomitant]
     Active Substance: HERBALS\TURMERIC
  4. ZINC. [Concomitant]
     Active Substance: ZINC
  5. VITAMIN K [PHYTOMENADIONE] [Concomitant]
  6. QUERCETIN DIHYDRATE [Concomitant]
  7. TAURINE [Concomitant]
     Active Substance: TAURINE
  8. DUPIXENT [Suspect]
     Active Substance: DUPILUMAB
     Indication: DERMATITIS ATOPIC
     Dosage: 300 MG, QOW
     Route: 058
     Dates: start: 20201016
  9. TRIAMCINOLONE [Concomitant]
     Active Substance: TRIAMCINOLONE
  10. VITAMIN E [Concomitant]
     Active Substance: .ALPHA.-TOCOPHEROL
  11. METHIONINE [Concomitant]
     Active Substance: METHIONINE
  12. GLYCINE. [Concomitant]
     Active Substance: GLYCINE
  13. ALBUTEROL SULFATE HFA [Concomitant]
     Active Substance: ALBUTEROL SULFATE
  14. SELENIUM [Concomitant]
     Active Substance: SELENIUM
  15. VITAMIN D3 [Concomitant]
     Active Substance: CHOLECALCIFEROL
  16. MAGNESIUM STEARATE [Concomitant]
     Active Substance: MAGNESIUM STEARATE
  17. ACETYLCYSTEINE. [Concomitant]
     Active Substance: ACETYLCYSTEINE
  18. GLUTATHIONE [Concomitant]
     Active Substance: GLUTATHIONE
  19. LITHIUM. [Concomitant]
     Active Substance: LITHIUM
  20. GRAPE SEED [VITIS VINIFERA] [Concomitant]
  21. VITAMIN C [Concomitant]
     Active Substance: ASCORBIC ACID
  22. HYDROXYZINE HCL [Concomitant]
     Active Substance: HYDROXYZINE HYDROCHLORIDE

REACTIONS (2)
  - Eye pruritus [Unknown]
  - Ocular hyperaemia [Unknown]

NARRATIVE: CASE EVENT DATE: 20201020
